FAERS Safety Report 10474501 (Version 2)
Quarter: 2014Q4

REPORT INFORMATION
  Report Type: Spontaneous
  Country: US (occurrence: US)
  Receive Date: 20140924
  Receipt Date: 20141122
  Transmission Date: 20150528
  Serious: No
  Sender: FDA-Public Use
  Company Number: US-009507513-1409USA007388

PATIENT

DRUGS (1)
  1. EMEND [Suspect]
     Active Substance: APREPITANT
     Indication: NEOPLASM MALIGNANT
     Dosage: ONE TABLET DAILY ONE HOUR BEFORE CHEMOTHERAPY
     Route: 048

REACTIONS (3)
  - Drug administration error [Unknown]
  - Product quality issue [Unknown]
  - Inappropriate schedule of drug administration [Unknown]
